FAERS Safety Report 6998729-4 (Version None)
Quarter: 2010Q3

REPORT INFORMATION
  Report Type: 
  Country: None (occurrence: None)
  Receive Date: 20100920
  Receipt Date: 20100217
  Transmission Date: 20110219
  Serious: Yes (Hospitalization, Other)
  Sender: FDA-Public Use
  Company Number: US-ASTRAZENECA-2009SE31457

PATIENT
  Age: 62 Year
  Sex: Female

DRUGS (4)
  1. SEROQUEL [Suspect]
     Route: 048
     Dates: start: 20040101, end: 20040101
  2. FENTANYL CITRATE [Concomitant]
  3. LISINOPRIL [Concomitant]
  4. RESTORIL [Concomitant]

REACTIONS (13)
  - AGITATION [None]
  - BACK PAIN [None]
  - CONFUSIONAL STATE [None]
  - DECREASED APPETITE [None]
  - DEPRESSION [None]
  - EMOTIONAL DISTRESS [None]
  - IMPAIRED DRIVING ABILITY [None]
  - NAUSEA [None]
  - NEUROLEPTIC MALIGNANT SYNDROME [None]
  - PAIN [None]
  - PANCREATITIS [None]
  - PARANOIA [None]
  - WEIGHT DECREASED [None]
